FAERS Safety Report 24648685 (Version 1)
Quarter: 2024Q4

REPORT INFORMATION
  Report Type: Other
  Country: FR (occurrence: FR)
  Receive Date: 20241121
  Receipt Date: 20241121
  Transmission Date: 20250115
  Serious: Yes (Death, Hospitalization)
  Sender: INCYTE
  Company Number: None

PATIENT

DRUGS (5)
  1. RUXOLITINIB [Suspect]
     Active Substance: RUXOLITINIB
     Indication: Immune reconstitution inflammatory syndrome
     Dosage: UNK
     Route: 048
     Dates: start: 20240927
  2. OLUMIANT [Suspect]
     Active Substance: BARICITINIB
     Indication: Gastrointestinal disorder
     Dosage: 1 MG, Q12H
     Route: 048
     Dates: start: 20211129, end: 202403
  3. INFLIXIMAB [Suspect]
     Active Substance: INFLIXIMAB
     Indication: Gastrointestinal disorder
     Dosage: 300 MG
     Route: 042
     Dates: start: 202404
  4. ENTYVIO [Suspect]
     Active Substance: VEDOLIZUMAB
     Indication: Gastrointestinal disorder
     Dosage: 300 MG
     Route: 042
     Dates: start: 202404
  5. SOLU-MEDROL [Concomitant]
     Active Substance: METHYLPREDNISOLONE SODIUM SUCCINATE
     Indication: Product used for unknown indication
     Dosage: UNK
     Route: 065

REACTIONS (2)
  - Condition aggravated [Fatal]
  - Bronchopulmonary aspergillosis [Not Recovered/Not Resolved]

NARRATIVE: CASE EVENT DATE: 20240502
